FAERS Safety Report 5425131-9 (Version None)
Quarter: 2007Q3

REPORT INFORMATION
  Report Type: 
  Country: None (occurrence: None)
  Receive Date: 20070824
  Receipt Date: 20070813
  Transmission Date: 20080115
  Serious: Yes (Other)
  Sender: FDA-Public Use
  Company Number: US-ROCHE-493711

PATIENT
  Age: 26 Year
  Sex: Male
  Weight: 81.6 kg

DRUGS (6)
  1. ACCUTANE [Suspect]
     Indication: ACNE
     Dosage: DOSAGE REGIMEN REPORTED AS 60 MG/40 MG AM/PM.
     Route: 048
     Dates: start: 19990211, end: 19990715
  2. MINOCIN [Concomitant]
  3. RETIN-A [Concomitant]
  4. PROPECIA [Concomitant]
  5. ROGAINE [Concomitant]
     Indication: ALOPECIA
  6. PREDNISONE TAB [Concomitant]

REACTIONS (12)
  - ANAEMIA [None]
  - ANXIETY [None]
  - COLITIS [None]
  - COLITIS ULCERATIVE [None]
  - CROHN'S DISEASE [None]
  - DEPRESSION [None]
  - DERMATITIS [None]
  - EPISTAXIS [None]
  - GASTROOESOPHAGEAL REFLUX DISEASE [None]
  - INFLAMMATORY BOWEL DISEASE [None]
  - IRRITABLE BOWEL SYNDROME [None]
  - PROCTITIS [None]
